FAERS Safety Report 8762930 (Version 1)
Quarter: 2012Q4

REPORT INFORMATION
  Report Type: Spontaneous
  Country: US (occurrence: None)
  Receive Date: 20120830
  Receipt Date: 20120830
  Transmission Date: 20130627
  Serious: Yes (Disabling)
  Sender: FDA-Public Use
  Company Number: None

PATIENT
  Age: 39 Year
  Sex: Female
  Weight: 47.63 kg

DRUGS (1)
  1. LEVAQUIN [Suspect]
     Indication: SINUS INFECTION
     Dosage: 1 pill 1 /day po
     Route: 048
     Dates: start: 20060621, end: 20060623

REACTIONS (12)
  - Abasia [None]
  - Muscle spasms [None]
  - Intervertebral disc protrusion [None]
  - Intervertebral disc protrusion [None]
  - Joint effusion [None]
  - Cartilage injury [None]
  - Nerve injury [None]
  - Connective tissue disorder [None]
  - Loss of employment [None]
  - Fibromyalgia [None]
  - Sciatica [None]
  - Hypersensitivity [None]
